FAERS Safety Report 11581082 (Version 1)
Quarter: 2015Q4

REPORT INFORMATION
  Report Type: Spontaneous
  Country: US (occurrence: US)
  Receive Date: 20151001
  Receipt Date: 20151001
  Transmission Date: 20160304
  Serious: No
  Sender: FDA-Public Use
  Company Number: US-ROCHE-700672

PATIENT
  Age: 62 Year
  Sex: Female
  Weight: 54.4 kg

DRUGS (5)
  1. LEXAPRO [Concomitant]
     Active Substance: ESCITALOPRAM OXALATE
     Route: 065
  2. PEGASYS [Suspect]
     Active Substance: PEGINTERFERON ALFA-2A
     Indication: HEPATITIS C
     Dosage: FORM: PRE-FILLED SYRINGE.
     Route: 058
  3. RIBASPHERE [Concomitant]
     Active Substance: RIBAVIRIN
     Route: 065
  4. XANAX [Concomitant]
     Active Substance: ALPRAZOLAM
     Route: 065
  5. CONCERTA [Concomitant]
     Active Substance: METHYLPHENIDATE HYDROCHLORIDE
     Route: 065

REACTIONS (3)
  - No adverse event [Unknown]
  - Pyrexia [Not Recovered/Not Resolved]
  - Exposure via direct contact [Unknown]

NARRATIVE: CASE EVENT DATE: 20100410
